FAERS Safety Report 5713874-9 (Version None)
Quarter: 2008Q2

REPORT INFORMATION
  Report Type: 
  Country: None (occurrence: None)
  Receive Date: 20080421
  Receipt Date: 20080404
  Transmission Date: 20081010
  Serious: Yes (Death)
  Sender: FDA-Public Use
  Company Number: A-CH2008-20126

PATIENT
  Age: 72 Year
  Sex: Female

DRUGS (3)
  1. TRACLEER [Suspect]
     Indication: DRUG USE FOR UNKNOWN INDICATION
     Dosage: 125 MG, BID, ORAL
     Route: 048
     Dates: start: 20040501, end: 20061201
  2. TREPROSTINIL (TREPROSTINIL) [Concomitant]
  3. VENTAVIS [Concomitant]

REACTIONS (2)
  - DISEASE PROGRESSION [None]
  - RIGHT VENTRICULAR FAILURE [None]
